FAERS Safety Report 6801673-6 (Version None)
Quarter: 2010Q2

REPORT INFORMATION
  Report Type: 
  Country: None (occurrence: None)
  Receive Date: 20100629
  Receipt Date: 20100616
  Transmission Date: 20101027
  Serious: No
  Sender: FDA-Public Use
  Company Number: US-B.I. PHARMACEUTICALS,INC./RIDGEFIELD-2009-BP-09713BP

PATIENT
  Age: 46 Year
  Sex: Male

DRUGS (1)
  1. CATAPRES-TTS-1 [Suspect]
     Indication: HYPERTENSION
     Dosage: 0.2 MG
     Route: 061
     Dates: start: 20090301

REACTIONS (9)
  - APPLICATION SITE BLEEDING [None]
  - APPLICATION SITE EROSION [None]
  - APPLICATION SITE ERYTHEMA [None]
  - APPLICATION SITE PAIN [None]
  - APPLICATION SITE VESICLES [None]
  - DRUG INEFFECTIVE [None]
  - HYPERTENSION [None]
  - ROAD TRAFFIC ACCIDENT [None]
  - THERAPEUTIC RESPONSE DECREASED [None]
